FAERS Safety Report 8756154 (Version 1)
Quarter: 2012Q4

REPORT INFORMATION
  Report Type: Report from Study
  Country: CA (occurrence: CA)
  Receive Date: 20120828
  Receipt Date: 20120828
  Transmission Date: 20130627
  Serious: Yes (Other)
  Sender: FDA-Public Use
  Company Number: CA-JNJFOC-20120811594

PATIENT
  Age: 54 Year
  Sex: Female
  Weight: 55 kg

DRUGS (7)
  1. REMICADE [Suspect]
     Indication: CROHN^S DISEASE
     Route: 042
     Dates: start: 20090520, end: 20120515
  2. OMEGA 3 [Concomitant]
     Route: 065
  3. IMODIUM [Concomitant]
     Route: 065
  4. CELEBREX [Concomitant]
     Route: 065
  5. GLUCOSAMINE [Concomitant]
     Route: 065
  6. NEXIUM [Concomitant]
     Route: 065
  7. AMITRIPTYLINE [Concomitant]
     Dosage: 25 in morning and 50 at bedtime
     Route: 065

REACTIONS (1)
  - Eye disorder [Unknown]
